FAERS Safety Report 14223463 (Version 1)
Quarter: 2017Q4

REPORT INFORMATION
  Report Type: Spontaneous
  Country: US (occurrence: US)
  Receive Date: 20171124
  Receipt Date: 20171124
  Transmission Date: 20180321
  Serious: No
  Sender: FDA-Public Use
  Company Number: US-ASTRAZENECA-2017SF17327

PATIENT
  Age: 79 Year
  Sex: Female

DRUGS (2)
  1. MOVANTIK [Suspect]
     Active Substance: NALOXEGOL OXALATE
     Indication: CONSTIPATION
     Dosage: AS REQUIRED
     Route: 048
  2. LYRICA [Suspect]
     Active Substance: PREGABALIN
     Route: 065

REACTIONS (9)
  - Hyperhidrosis [Unknown]
  - Back pain [Unknown]
  - Sacroiliitis [Unknown]
  - Body height decreased [Unknown]
  - Fall [Unknown]
  - Colitis microscopic [Unknown]
  - Weight fluctuation [Unknown]
  - Decreased appetite [Unknown]
  - Myalgia [Recovering/Resolving]
